FAERS Safety Report 5749257-5 (Version None)
Quarter: 2008Q2

REPORT INFORMATION
  Report Type: 
  Country: None (occurrence: None)
  Receive Date: 20080527
  Receipt Date: 20080516
  Transmission Date: 20081010
  Serious: Yes (Other)
  Sender: FDA-Public Use
  Company Number: US-JNJFOC-20080300110

PATIENT
  Sex: Male
  Weight: 76.66 kg

DRUGS (8)
  1. REMICADE [Suspect]
     Dosage: 5 MG/KG IN 250 ML NSS, 4TH INFUSION
     Route: 042
  2. REMICADE [Suspect]
     Dosage: 5 MG/KG IN 250 ML NSS, 3RD INFUSION
     Route: 042
  3. REMICADE [Suspect]
     Route: 042
  4. REMICADE [Suspect]
     Indication: CROHN'S DISEASE
     Dosage: 5 MG/KG IN 250 ML NSS, 1ST INFUSION
     Route: 042
  5. SULFASALAZINE [Concomitant]
     Indication: CROHN'S DISEASE
     Dosage: TO PRESENT
  6. FOLIC ACID [Concomitant]
     Indication: CROHN'S DISEASE
     Dosage: TO PRESENT
  7. PROSCAR [Concomitant]
     Indication: BENIGN PROSTATIC HYPERPLASIA
     Dosage: TO PRESENT
  8. CRESTOR [Concomitant]
     Indication: BLOOD CHOLESTEROL INCREASED
     Dosage: TO PRESENT

REACTIONS (1)
  - NEUROPATHY PERIPHERAL [None]
